FAERS Safety Report 10217396 (Version 1)
Quarter: 2014Q2

REPORT INFORMATION
  Report Type: Spontaneous
  Country: US (occurrence: US)
  Receive Date: 20140604
  Receipt Date: 20140604
  Transmission Date: 20141212
  Serious: Yes (Other)
  Sender: FDA-Public Use
  Company Number: US-PFIZER INC-2014150169

PATIENT
  Age: 81 Year
  Sex: Male

DRUGS (8)
  1. LIPITOR [Suspect]
     Indication: CARDIOVASCULAR EVENT PROPHYLAXIS
     Dosage: 10 MG, 1X/DAY
     Route: 048
  2. LISINOPRIL W/HYDROCHLOROTHIAZIDE [Concomitant]
     Indication: BLOOD PRESSURE ABNORMAL
     Dosage: 10/12.5 MG
  3. AMLODIPINE [Concomitant]
     Dosage: 5 MG, 1X/DAY
  4. ASPIRIN [Concomitant]
     Dosage: 81 MG, UNK
  5. ATENOLOL [Concomitant]
     Indication: CARDIAC DISORDER
     Dosage: 15 MG, UNK
  6. RANITIDINE [Concomitant]
     Indication: GASTROOESOPHAGEAL REFLUX DISEASE
     Dosage: 150 MG, 1X/DAY
  7. VITAMIN D3 [Concomitant]
     Dosage: 1000 IU, UNK
  8. LORAZEPAM [Concomitant]
     Dosage: 1 MG, UNK

REACTIONS (3)
  - Cardiovascular disorder [Unknown]
  - Atrioventricular block [Unknown]
  - Back pain [Unknown]
